FAERS Safety Report 13551559 (Version 2)
Quarter: 2017Q2

REPORT INFORMATION
  Report Type: Report from Study
  Country: NL (occurrence: NL)
  Receive Date: 20170516
  Receipt Date: 20170602
  Transmission Date: 20170830
  Serious: Yes (Hospitalization)
  Sender: FDA-Public Use
  Company Number: NL-ASTELLAS-2017US018743

PATIENT
  Age: 76 Year
  Sex: Male

DRUGS (2)
  1. ERLOTINIB [Suspect]
     Active Substance: ERLOTINIB
     Indication: NON-SMALL CELL LUNG CANCER
     Route: 048
     Dates: start: 20170503
  2. DOCETAXEL. [Suspect]
     Active Substance: DOCETAXEL
     Indication: NON-SMALL CELL LUNG CANCER
     Dosage: 130 MG, OTHER (ONCE IN 3 WEEKS)
     Route: 042
     Dates: start: 20170502

REACTIONS (2)
  - Febrile neutropenia [Recovered/Resolved with Sequelae]
  - Stomatitis [Recovered/Resolved with Sequelae]

NARRATIVE: CASE EVENT DATE: 20170509
